FAERS Safety Report 7073030-1 (Version None)
Quarter: 2010Q4

REPORT INFORMATION
  Report Type: 
  Country: None (occurrence: None)
  Receive Date: 20101029
  Receipt Date: 20100413
  Transmission Date: 20110411
  Serious: No
  Sender: FDA-Public Use
  Company Number: A0854807A

PATIENT
  Age: 71 Year
  Sex: Female

DRUGS (7)
  1. ADVAIR DISKUS 100/50 [Suspect]
     Indication: ASTHMA
     Dosage: 1PUFF PER DAY
     Route: 055
     Dates: start: 20100323, end: 20100326
  2. SYNTHROID [Concomitant]
  3. PROTONIX [Concomitant]
  4. CELEBREX [Concomitant]
  5. LOVASTATIN [Concomitant]
  6. ALLERGY MEDICINE [Concomitant]
  7. VITAMINS [Concomitant]

REACTIONS (3)
  - ERUCTATION [None]
  - ILL-DEFINED DISORDER [None]
  - OESOPHAGEAL SPASM [None]
